FAERS Safety Report 6903012-9 (Version None)
Quarter: 2010Q3

REPORT INFORMATION
  Report Type: 
  Country: None (occurrence: None)
  Receive Date: 20100803
  Receipt Date: 20080707
  Transmission Date: 20110219
  Serious: No
  Sender: FDA-Public Use
  Company Number: US-PFIZER INC-2008057236

PATIENT
  Sex: Female
  Weight: 81.8 kg

DRUGS (7)
  1. LYRICA [Suspect]
     Indication: FIBROMYALGIA
     Route: 048
     Dates: start: 20080201
  2. LYRICA [Suspect]
     Indication: PERIPHERAL SENSORY NEUROPATHY
  3. MORPHINE [Concomitant]
     Route: 048
  4. TYLENOL [Concomitant]
     Route: 048
  5. LEVOTHYROXINE [Concomitant]
     Route: 048
  6. ESTRADIOL [Concomitant]
     Route: 048
  7. XANAX [Concomitant]
     Route: 048

REACTIONS (3)
  - INCREASED APPETITE [None]
  - URINARY INCONTINENCE [None]
  - WEIGHT INCREASED [None]
